FAERS Safety Report 8138314-4 (Version None)
Quarter: 2012Q1

REPORT INFORMATION
  Report Type: 
  Country: None (occurrence: None)
  Receive Date: 20120215
  Receipt Date: 20120206
  Transmission Date: 20120608
  Serious: Yes (Hospitalization, Other)
  Sender: FDA-Public Use
  Company Number: JP-JNJFOC-20111207420

PATIENT
  Sex: Male

DRUGS (10)
  1. ANTEBATE [Concomitant]
     Indication: PSORIASIS
     Route: 061
  2. STELARA [Suspect]
     Indication: PSORIASIS
     Route: 058
     Dates: start: 20111202
  3. OXAROL [Concomitant]
     Indication: PSORIASIS
     Route: 061
     Dates: end: 20111209
  4. PYDOXAL [Concomitant]
     Indication: PROPHYLAXIS
     Route: 048
     Dates: start: 20111203, end: 20111219
  5. DOVONEX [Concomitant]
     Indication: PSORIASIS
     Route: 061
     Dates: start: 20111213
  6. EPINASTINE HYDROCHLORIDE [Concomitant]
     Indication: PSORIASIS
     Route: 048
  7. ACETAMINOPHEN [Concomitant]
     Dates: start: 20111213
  8. ISONIAZID [Suspect]
     Dates: start: 20111213, end: 20111218
  9. OLOPATADINE HCL [Concomitant]
     Indication: PSORIASIS
     Dates: start: 20111213, end: 20111219
  10. ISONIAZID [Suspect]
     Indication: PROPHYLAXIS
     Dates: start: 20111110, end: 20111201

REACTIONS (4)
  - CHILLS [None]
  - COUGH [None]
  - DERMATITIS EXFOLIATIVE [None]
  - HEPATIC FUNCTION ABNORMAL [None]
